FAERS Safety Report 9720838 (Version 2)
Quarter: 2013Q4

REPORT INFORMATION
  Report Type: Spontaneous
  Country: IT (occurrence: IT)
  Receive Date: 20131129
  Receipt Date: 20131206
  Transmission Date: 20140711
  Serious: Yes (Other)
  Sender: FDA-Public Use
  Company Number: IT-PFIZER INC-2013340955

PATIENT
  Age: 79 Year
  Sex: Female

DRUGS (3)
  1. PEPTAZOL [Suspect]
     Indication: OESOPHAGITIS
     Dosage: 20 MG, 1X/DAY
     Route: 048
     Dates: start: 20050101, end: 20130706
  2. COMBISARTAN [Concomitant]
     Dosage: UNK
  3. DIBASE [Concomitant]
     Dosage: 2.5 ML, UNK
     Route: 048

REACTIONS (2)
  - Xerophthalmia [Recovered/Resolved]
  - Dry mouth [Recovered/Resolved]
